FAERS Safety Report 5268266-6 (Version None)
Quarter: 2007Q1

REPORT INFORMATION
  Report Type: 
  Country: None (occurrence: None)
  Receive Date: 20070313
  Receipt Date: 20070227
  Transmission Date: 20070707
  Serious: Yes (Hospitalization)
  Sender: FDA-Public Use
  Company Number: 2006S1003145

PATIENT
  Age: 63 Year
  Sex: Female
  Weight: 99.7913 kg

DRUGS (26)
  1. AMITRIPTYLINE HYDROCHLORIDE [Suspect]
     Indication: INSOMNIA
     Dosage: SEE IMAGE
     Route: 048
     Dates: start: 20060301, end: 20060307
  2. AMITRIPTYLINE HYDROCHLORIDE [Suspect]
     Indication: SLEEP DISORDER
     Dosage: SEE IMAGE
     Route: 048
     Dates: start: 20060301, end: 20060307
  3. AMITRIPTYLINE HYDROCHLORIDE [Suspect]
     Indication: INSOMNIA
     Dosage: SEE IMAGE
     Route: 048
     Dates: start: 20060309, end: 20060309
  4. AMITRIPTYLINE HYDROCHLORIDE [Suspect]
     Indication: SLEEP DISORDER
     Dosage: SEE IMAGE
     Route: 048
     Dates: start: 20060309, end: 20060309
  5. AMITRIPTYLINE HYDROCHLORIDE [Suspect]
     Indication: INSOMNIA
     Dosage: SEE IMAGE
     Route: 048
     Dates: start: 20060310, end: 20060321
  6. AMITRIPTYLINE HYDROCHLORIDE [Suspect]
     Indication: SLEEP DISORDER
     Dosage: SEE IMAGE
     Route: 048
     Dates: start: 20060310, end: 20060321
  7. FENTANYL CITRATE [Suspect]
     Indication: BREAKTHROUGH PAIN
     Dosage: 200 UG; AS NEEDED; BUCCA
     Route: 002
     Dates: start: 20051212, end: 20060331
  8. METHADONE HCL [Suspect]
     Dosage: SEE IMAGE
     Route: 048
     Dates: start: 20050722
  9. FUROSEMIDE [Concomitant]
  10. POTASSIUM ACETATE [Concomitant]
  11. ACETYLSALICYLIC ACID SRT [Concomitant]
  12. GLYBURIDE [Concomitant]
  13. DOCUSATE [Concomitant]
  14. LISINOPRIL [Concomitant]
  15. CARBAMAZEPINE [Concomitant]
  16. ROSIGLITAZONE MALEATE [Concomitant]
  17. INSULIN GLARGINE [Concomitant]
  18. CITALOPRAM HYDROBROMIDE [Concomitant]
  19. AMLODIPINE [Concomitant]
  20. METHOCARBAMOL [Concomitant]
  21. ACETAMINOPHEN AND HYDROCODONE BITARTRATE [Concomitant]
  22. GABAPENTIN [Concomitant]
  23. CLONAZEPAM [Concomitant]
  24. BUSPIRONE HCL [Concomitant]
  25. METFORMIN HCL [Concomitant]
  26. TRAVOPROST [Concomitant]

REACTIONS (9)
  - BLOOD POTASSIUM INCREASED [None]
  - BLOOD SODIUM DECREASED [None]
  - DRUG INTERACTION [None]
  - LETHARGY [None]
  - LISTLESS [None]
  - MENTAL STATUS CHANGES [None]
  - MIOSIS [None]
  - OVERDOSE [None]
  - SOMNOLENCE [None]
